FAERS Safety Report 13677421 (Version 2)
Quarter: 2017Q4

REPORT INFORMATION
  Report Type: Spontaneous
  Country: US (occurrence: US)
  Receive Date: 20170622
  Receipt Date: 20171130
  Transmission Date: 20180320
  Serious: Yes (Death)
  Sender: FDA-Public Use
  Company Number: US-LEADIANT BIOSCIENCES INC-2017STPI000456

PATIENT
  Age: 57 Year
  Sex: Male

DRUGS (1)
  1. MATULANE [Suspect]
     Active Substance: PROCARBAZINE HYDROCHLORIDE
     Indication: HODGKIN^S DISEASE
     Dosage: 200 MG, QD
     Route: 048
     Dates: start: 20161004

REACTIONS (1)
  - Death [Fatal]

NARRATIVE: CASE EVENT DATE: 20170529
